FAERS Safety Report 5928738-5 (Version None)
Quarter: 2008Q4

REPORT INFORMATION
  Report Type: 
  Country: None (occurrence: None)
  Receive Date: 20081023
  Receipt Date: 20081017
  Transmission Date: 20090506
  Serious: Yes (Disabling)
  Sender: FDA-Public Use
  Company Number: AU-MERCK-0801AUS00152

PATIENT
  Age: 75 Year
  Sex: Male
  Weight: 99 kg

DRUGS (9)
  1. ZETIA [Suspect]
     Indication: BLOOD CHOLESTEROL INCREASED
     Route: 048
     Dates: start: 20060803
  2. DIGOXIN [Concomitant]
     Indication: ATRIAL FIBRILLATION
     Route: 065
  3. ASPIRIN [Concomitant]
     Route: 065
     Dates: start: 20061102
  4. CLOPIDOGREL BISULFATE [Suspect]
     Indication: ATRIAL FIBRILLATION
     Route: 048
     Dates: start: 20070127
  5. CLOPIDOGREL BISULFATE [Suspect]
     Indication: MYOCARDIAL ISCHAEMIA
     Route: 048
     Dates: start: 20070127
  6. QUINAPRIL HYDROCHLORIDE [Concomitant]
     Route: 065
  7. OXYCODONE [Suspect]
     Route: 065
     Dates: start: 20060928
  8. FUROSEMIDE [Suspect]
     Route: 065
     Dates: start: 20070104
  9. ATORVASTATIN [Suspect]
     Route: 048
     Dates: start: 20060815

REACTIONS (1)
  - DENTAL CARIES [None]
